FAERS Safety Report 23994455 (Version 2)
Quarter: 2024Q3

REPORT INFORMATION
  Report Type: Spontaneous
  Country: US (occurrence: US)
  Receive Date: 20240620
  Receipt Date: 20240726
  Transmission Date: 20241016
  Serious: No
  Sender: GILEAD
  Company Number: US-GILEAD-2024-0677581

PATIENT
  Age: 30 Year
  Sex: Female
  Weight: 91.61 kg

DRUGS (1)
  1. EPCLUSA [Suspect]
     Active Substance: SOFOSBUVIR\VELPATASVIR
     Indication: Hepatitis C
     Dosage: 400/100MG
     Route: 048
     Dates: start: 20240611

REACTIONS (1)
  - Onychomadesis [Unknown]

NARRATIVE: CASE EVENT DATE: 20240614
